FAERS Safety Report 18669068 (Version 2)
Quarter: 2021Q1

REPORT INFORMATION
  Report Type: Report from Study
  Country: US (occurrence: US)
  Receive Date: 20201228
  Receipt Date: 20210211
  Transmission Date: 20210419
  Serious: Yes (Hospitalization, Other)
  Sender: FDA-Public Use
  Company Number: US-TAKEDA-2020TUS059886

PATIENT
  Sex: Female
  Weight: 68.89 kg

DRUGS (8)
  1. TEDUGLUTIDE [Suspect]
     Active Substance: TEDUGLUTIDE
     Indication: SHORT-BOWEL SYNDROME
     Dosage: 0.179 MILLILITER, QD
     Route: 050
  2. TEDUGLUTIDE [Suspect]
     Active Substance: TEDUGLUTIDE
     Indication: CROHN^S DISEASE
     Dosage: 0.3500 (UNIT UNSPECIFIED)
     Route: 058
     Dates: start: 20190826
  3. TEDUGLUTIDE [Suspect]
     Active Substance: TEDUGLUTIDE
     Indication: CROHN^S DISEASE
     Dosage: 0.3500 (UNIT UNSPECIFIED)
     Route: 058
     Dates: start: 20190826
  4. TEDUGLUTIDE [Suspect]
     Active Substance: TEDUGLUTIDE
     Indication: SHORT-BOWEL SYNDROME
     Dosage: 0.179 MILLILITER, QD
     Route: 050
  5. TEDUGLUTIDE [Suspect]
     Active Substance: TEDUGLUTIDE
     Indication: SHORT-BOWEL SYNDROME
     Dosage: 0.179 MILLILITER, QD
     Route: 050
  6. TEDUGLUTIDE [Suspect]
     Active Substance: TEDUGLUTIDE
     Indication: CROHN^S DISEASE
     Dosage: 0.3500 (UNIT UNSPECIFIED)
     Route: 058
     Dates: start: 20190826
  7. TEDUGLUTIDE [Suspect]
     Active Substance: TEDUGLUTIDE
     Indication: CROHN^S DISEASE
     Dosage: 0.3500 (UNIT UNSPECIFIED)
     Route: 058
     Dates: start: 20190826
  8. TEDUGLUTIDE [Suspect]
     Active Substance: TEDUGLUTIDE
     Indication: SHORT-BOWEL SYNDROME
     Dosage: 0.179 MILLILITER, QD
     Route: 050

REACTIONS (1)
  - COVID-19 [Recovering/Resolving]
